FAERS Safety Report 11690136 (Version 4)
Quarter: 2018Q1

REPORT INFORMATION
  Report Type: Spontaneous
  Country: JP (occurrence: JP)
  Receive Date: 20151102
  Receipt Date: 20180213
  Transmission Date: 20180508
  Serious: Yes (Hospitalization)
  Sender: FDA-Public Use
  Company Number: JP-JNJFOC-20151023273

PATIENT
  Age: 74 Year
  Sex: Female
  Weight: 45 kg

DRUGS (8)
  1. SELBEX [Concomitant]
     Active Substance: TEPRENONE
     Indication: GASTRITIS
     Route: 048
     Dates: start: 200601
  2. FLUVASTATIN SODIUM. [Concomitant]
     Active Substance: FLUVASTATIN SODIUM
     Indication: HYPERLIPIDAEMIA
     Route: 048
     Dates: start: 200601
  3. DEPAS [Concomitant]
     Active Substance: ETIZOLAM
     Indication: CERVICOBRACHIAL SYNDROME
     Route: 048
     Dates: start: 200601
  4. CEROCRAL [Suspect]
     Active Substance: IFENPRODIL
     Indication: CEREBRAL INFARCTION
     Route: 048
     Dates: start: 200601, end: 201409
  5. REMINYL [Suspect]
     Active Substance: GALANTAMINE
     Indication: DEMENTIA ALZHEIMER^S TYPE
     Route: 048
     Dates: start: 20140826, end: 20140927
  6. REMINYL [Suspect]
     Active Substance: GALANTAMINE
     Indication: DEMENTIA ALZHEIMER^S TYPE
     Route: 048
     Dates: start: 20140602, end: 20140825
  7. LIPITOR [Concomitant]
     Active Substance: ATORVASTATIN CALCIUM
     Indication: PRODUCT USED FOR UNKNOWN INDICATION
     Route: 048
  8. ATELEC [Concomitant]
     Active Substance: CILNIDIPINE
     Indication: HYPERTENSION
     Route: 048
     Dates: start: 201412

REACTIONS (3)
  - Back pain [Unknown]
  - Rhabdomyolysis [Recovered/Resolved]
  - Nasopharyngitis [Unknown]

NARRATIVE: CASE EVENT DATE: 20140926
